FAERS Safety Report 12460458 (Version 1)
Quarter: 2016Q2

REPORT INFORMATION
  Report Type: Spontaneous
  Country: US (occurrence: US)
  Receive Date: 20160613
  Receipt Date: 20160613
  Transmission Date: 20160815
  Serious: No
  Sender: FDA-Public Use
  Company Number: US-PFIZER INC-2016287858

PATIENT
  Sex: Male

DRUGS (1)
  1. BOSULIF [Suspect]
     Active Substance: BOSUTINIB MONOHYDRATE
     Dosage: 500 MG, UNK
     Dates: start: 20160601

REACTIONS (4)
  - Chills [Unknown]
  - Hyperhidrosis [Unknown]
  - Feeling cold [Unknown]
  - Body temperature increased [Unknown]

NARRATIVE: CASE EVENT DATE: 20160601
